FAERS Safety Report 23544255 (Version 1)
Quarter: 2024Q1

REPORT INFORMATION
  Report Type: Spontaneous
  Country: US (occurrence: US)
  Receive Date: 20240220
  Receipt Date: 20240220
  Transmission Date: 20240410
  Serious: No
  Sender: FDA-Public Use
  Company Number: US-VERTEX PHARMACEUTICALS-2024-002414

PATIENT
  Age: 5 Year
  Sex: Male

DRUGS (4)
  1. TRIKAFTA [Suspect]
     Active Substance: ELEXACAFTOR\IVACAFTOR\TEZACAFTOR
     Indication: Cystic fibrosis
     Dosage: UNKNOWN
     Route: 048
     Dates: start: 20230602, end: 20240204
  2. TRIKAFTA [Suspect]
     Active Substance: ELEXACAFTOR\IVACAFTOR\TEZACAFTOR
     Dosage: DIDN^T GIVE BLUE TABLET AT NIGHT
     Route: 048
     Dates: start: 20240205, end: 20240206
  3. TRIKAFTA [Suspect]
     Active Substance: ELEXACAFTOR\IVACAFTOR\TEZACAFTOR
     Dosage: DIDN^T GIVE BLUE TABLET ALL DAY
     Route: 048
     Dates: start: 20240205, end: 20240206
  4. TRIKAFTA [Suspect]
     Active Substance: ELEXACAFTOR\IVACAFTOR\TEZACAFTOR
     Dosage: HALF DOSE DOSE AM, PM
     Route: 048
     Dates: start: 20240207

REACTIONS (12)
  - Irritability [Recovering/Resolving]
  - Insomnia [Recovering/Resolving]
  - Anxiety [Recovering/Resolving]
  - Psychomotor hyperactivity [Recovering/Resolving]
  - Nightmare [Unknown]
  - Amnesia [Recovering/Resolving]
  - Crying [Recovering/Resolving]
  - Increased viscosity of bronchial secretion [Unknown]
  - Dyskinesia [Unknown]
  - Mental impairment [Recovering/Resolving]
  - Eating disorder [Recovered/Resolved]
  - Headache [Recovering/Resolving]

NARRATIVE: CASE EVENT DATE: 20230801
